FAERS Safety Report 19224551 (Version 15)
Quarter: 2022Q2

REPORT INFORMATION
  Report Type: Report from Study
  Country: TR (occurrence: None)
  Receive Date: 20210506
  Receipt Date: 20220428
  Transmission Date: 20220721
  Serious: Yes (Death, Hospitalization)
  Sender: FDA-Public Use
  Company Number: TR-ROCHE-2812956

PATIENT
  Age: 70 Year
  Sex: Female
  Weight: 66.6 kg

DRUGS (36)
  1. TIRAGOLUMAB [Suspect]
     Active Substance: TIRAGOLUMAB
     Indication: Non-small cell lung cancer
     Dosage: START DATE OF MOST RECENT DOSE OF STUDY DRUG PRIOR TO AE/SAE WAS ON 07/APRL/2021? ON DAY 1 OF EACH 2
     Route: 042
     Dates: start: 20210407
  2. ATEZOLIZUMAB [Suspect]
     Active Substance: ATEZOLIZUMAB
     Indication: Non-small cell lung cancer
     Dosage: START DATE OF MOST RECENT DOSE (1200 MG) OF STUDY DRUG PRIOR TO AE/SAE WAS ON 07/APR/2021.
     Route: 041
     Dates: start: 20210407
  3. LERCANIDIPINE HYDROCHLORIDE [Concomitant]
     Active Substance: LERCANIDIPINE HYDROCHLORIDE
     Indication: Tension
     Route: 048
     Dates: start: 2009
  4. SARILEN (TURKEY) [Concomitant]
     Indication: Tension
     Route: 048
     Dates: start: 2009
  5. ASPIRIN [Concomitant]
     Active Substance: ASPIRIN
     Indication: Blood cholesterol increased
     Route: 048
     Dates: start: 2009
  6. ASPIRIN [Concomitant]
     Active Substance: ASPIRIN
     Route: 048
     Dates: start: 20210414, end: 20210417
  7. VENTOLIN [Concomitant]
     Active Substance: ALBUTEROL SULFATE
     Indication: Dyspnoea
     Route: 055
     Dates: start: 2018
  8. RESPIRO [Concomitant]
     Indication: Dyspnoea
     Route: 055
     Dates: start: 2018
  9. NEXIUM [Concomitant]
     Active Substance: ESOMEPRAZOLE MAGNESIUM
     Route: 048
     Dates: start: 202103
  10. METOCLOPRAMIDE [Concomitant]
     Active Substance: METOCLOPRAMIDE
     Route: 048
     Dates: start: 202103
  11. ACETAMINOPHEN\CAFFEINE\CODEINE PHOSPHATE [Concomitant]
     Active Substance: ACETAMINOPHEN\CAFFEINE\CODEINE PHOSPHATE
     Route: 048
     Dates: start: 202103
  12. DEXAMETHASONE [Concomitant]
     Active Substance: DEXAMETHASONE
     Route: 048
     Dates: start: 20210310, end: 20210323
  13. COLASTIN-L [Concomitant]
     Indication: Blood cholesterol increased
     Route: 048
     Dates: start: 2009
  14. LASIX [Concomitant]
     Active Substance: FUROSEMIDE
     Route: 042
     Dates: start: 20210414, end: 20210414
  15. LASIX [Concomitant]
     Active Substance: FUROSEMIDE
     Route: 042
     Dates: start: 20210415, end: 20210416
  16. LASIX [Concomitant]
     Active Substance: FUROSEMIDE
     Route: 042
     Dates: start: 20210416, end: 20210417
  17. ENOXAPARIN SODIUM [Concomitant]
     Active Substance: ENOXAPARIN SODIUM
     Route: 058
     Dates: start: 20210414, end: 20210414
  18. ENOXAPARIN SODIUM [Concomitant]
     Active Substance: ENOXAPARIN SODIUM
     Route: 058
     Dates: start: 20210415, end: 20210422
  19. ENOXAPARIN SODIUM [Concomitant]
     Active Substance: ENOXAPARIN SODIUM
     Route: 058
     Dates: start: 20210423, end: 20210502
  20. LOSEC [Concomitant]
     Active Substance: OMEPRAZOLE
     Route: 042
     Dates: start: 20210414, end: 20210502
  21. DORMICUM [Concomitant]
     Route: 042
     Dates: start: 20210416, end: 20210416
  22. DORMICUM [Concomitant]
     Route: 042
     Dates: start: 20210414, end: 20210414
  23. DORMICUM [Concomitant]
     Route: 042
     Dates: start: 20210418, end: 20210425
  24. DORMICUM [Concomitant]
     Route: 042
     Dates: start: 20210428, end: 20210502
  25. CERNEVIT [Concomitant]
     Active Substance: VITAMINS
     Route: 042
     Dates: start: 20210415, end: 20210415
  26. CERNEVIT [Concomitant]
     Active Substance: VITAMINS
     Route: 042
     Dates: start: 20210424, end: 20210424
  27. CERNEVIT [Concomitant]
     Active Substance: VITAMINS
     Route: 042
     Dates: start: 20210428, end: 20210428
  28. DUPHALAC [Concomitant]
     Active Substance: LACTULOSE
     Route: 048
     Dates: start: 20210416, end: 20210417
  29. XANAX [Concomitant]
     Active Substance: ALPRAZOLAM
     Route: 048
     Dates: start: 20210417, end: 20210417
  30. ROCURONIUM BROMIDE [Concomitant]
     Active Substance: ROCURONIUM BROMIDE
     Route: 042
     Dates: start: 20210418, end: 20210425
  31. ROCURONIUM BROMIDE [Concomitant]
     Active Substance: ROCURONIUM BROMIDE
     Route: 042
     Dates: start: 20210428, end: 20210502
  32. FLUMAZENIL [Concomitant]
     Active Substance: FLUMAZENIL
     Dosage: 1 AMPULE
     Route: 042
     Dates: start: 20210426, end: 20210426
  33. MANNITOL [Concomitant]
     Active Substance: MANNITOL
     Route: 042
     Dates: start: 20210427, end: 20210427
  34. BELOC (TURKEY) [Concomitant]
     Dosage: 1 AMPULE
     Route: 042
     Dates: start: 20210427, end: 20210427
  35. CELLCEPT [Concomitant]
     Active Substance: MYCOPHENOLATE MOFETIL
     Route: 048
     Dates: start: 20210430, end: 20210430
  36. VITAMIN C [Concomitant]
     Active Substance: ASCORBIC ACID
     Route: 042
     Dates: start: 20210415, end: 20210415

REACTIONS (3)
  - Renal failure [Not Recovered/Not Resolved]
  - Pneumonitis [Not Recovered/Not Resolved]
  - Pneumonia [Fatal]

NARRATIVE: CASE EVENT DATE: 20210414
